FAERS Safety Report 23596287 (Version 5)
Quarter: 2024Q2

REPORT INFORMATION
  Report Type: Spontaneous
  Country: US (occurrence: US)
  Receive Date: 20240305
  Receipt Date: 20240521
  Transmission Date: 20240717
  Serious: No
  Sender: FDA-Public Use
  Company Number: US-PFIZER INC-202400053144

PATIENT
  Age: 65 Year
  Sex: Female

DRUGS (2)
  1. ESTRING [Suspect]
     Active Substance: ESTRADIOL
     Indication: Menopause
     Dosage: 1 EVERY 3 MONTHS
     Route: 067
  2. ESTRADIOL [Concomitant]
     Active Substance: ESTRADIOL
     Dosage: UNK
     Dates: start: 202401

REACTIONS (4)
  - Discomfort [Unknown]
  - Pruritus [Unknown]
  - Dyspareunia [Unknown]
  - Off label use [Unknown]
